FAERS Safety Report 5281552-9 (Version None)
Quarter: 2007Q1

REPORT INFORMATION
  Report Type: 
  Country: None (occurrence: None)
  Receive Date: 20070323
  Receipt Date: 20070323
  Transmission Date: 20070707
  Serious: Yes (Other)
  Sender: FDA-Public Use
  Company Number: None

PATIENT
  Sex: Female
  Weight: 94.3482 kg

DRUGS (7)
  1. CITALOPRAM HYDROBROMIDE [Suspect]
     Indication: DEPRESSION
     Dosage: 20 MG ONE TIME QD PO
     Route: 048
     Dates: start: 20050501, end: 20060301
  2. ZYRTEC [Concomitant]
  3. ATIVAN [Concomitant]
  4. VYTORIN [Concomitant]
  5. PROGARD [Concomitant]
  6. CLARITIN [Concomitant]
  7. RETINOL EYE CREME [Concomitant]

REACTIONS (10)
  - AGGRESSION [None]
  - ANGER [None]
  - CRYING [None]
  - DISTURBANCE IN ATTENTION [None]
  - DRUG INEFFECTIVE [None]
  - EMOTIONAL DISORDER [None]
  - HYPERSOMNIA [None]
  - IMPAIRED WORK ABILITY [None]
  - NERVOUSNESS [None]
  - SOMNOLENCE [None]
